FAERS Safety Report 4659760-7 (Version None)
Quarter: 2005Q2

REPORT INFORMATION
  Report Type: 
  Country: None (occurrence: None)
  Receive Date: 20050510
  Receipt Date: 20050504
  Transmission Date: 20051028
  Serious: Yes (Other)
  Sender: FDA-Public Use
  Company Number: 200511228BCC

PATIENT
  Age: 32 Year
  Sex: Female
  Weight: 113.3993 kg

DRUGS (4)
  1. PHILLIPS LAXATIVE DIETARY SUPPLEMENT (MAGNESIUM) [Suspect]
     Indication: CONSTIPATION
     Dosage: 1000 MG, HS, ORAL
     Route: 048
     Dates: start: 20050319, end: 20050322
  2. COUMADIN [Concomitant]
  3. NORCO [Concomitant]
  4. ULTRAM [Concomitant]

REACTIONS (1)
  - RECTAL HAEMORRHAGE [None]
